FAERS Safety Report 8282622-3 (Version None)
Quarter: 2012Q2

REPORT INFORMATION
  Report Type: 
  Country: None (occurrence: None)
  Receive Date: 20120413
  Receipt Date: 20120411
  Transmission Date: 20120825
  Serious: No
  Sender: FDA-Public Use
  Company Number: US-PFIZER INC-2012090673

PATIENT
  Sex: Female
  Weight: 86.168 kg

DRUGS (11)
  1. CELEBREX [Suspect]
     Indication: PAIN
     Dosage: 200 MG, 2X/DAY
     Route: 048
     Dates: start: 20120117, end: 20120317
  2. CELEBREX [Suspect]
     Indication: BACK PAIN
  3. POTASSIUM CHLORIDE [Concomitant]
     Dosage: UNK
  4. CELEBREX [Suspect]
     Indication: SWELLING
     Dosage: 200 MG, 1X/DAY
     Route: 048
     Dates: start: 20120317
  5. CELEBREX [Suspect]
     Indication: OEDEMA
  6. TRIAMTERENE AND HYDROCHLOROTHIAZIDE [Concomitant]
     Dosage: 37.5/25 MG, UNK
  7. BETAPACE [Concomitant]
     Dosage: 80 MG, UNK
  8. NORVASC [Concomitant]
     Dosage: 2.5 MG, UNK
  9. PRILOSEC [Concomitant]
     Dosage: 20 MG, UNK
  10. CELEBREX [Suspect]
     Indication: HAEMATOMA
  11. ACETYLSALICYLIC ACID [Concomitant]
     Dosage: 81 MG, 1X/DAY

REACTIONS (1)
  - ALOPECIA [None]
